FAERS Safety Report 7005444-X (Version None)
Quarter: 2010Q3

REPORT INFORMATION
  Report Type: 
  Country: None (occurrence: None)
  Receive Date: 20100921
  Receipt Date: 20100913
  Transmission Date: 20110219
  Serious: Yes (Other)
  Sender: FDA-Public Use
  Company Number: TR-ROCHE-726583

PATIENT

DRUGS (2)
  1. ROFERON-A [Suspect]
     Route: 065
  2. COPEGUS [Suspect]
     Route: 065

REACTIONS (3)
  - BLINDNESS UNILATERAL [None]
  - OPTIC ATROPHY [None]
  - OPTIC ISCHAEMIC NEUROPATHY [None]
